FAERS Safety Report 9384556 (Version 2)
Quarter: 2013Q3

REPORT INFORMATION
  Report Type: Report from Study
  Country: CH (occurrence: CH)
  Receive Date: 20130705
  Receipt Date: 20130801
  Transmission Date: 20140515
  Serious: Yes (Life-Threatening, Hospitalization)
  Sender: FDA-Public Use
  Company Number: CH-MPIJNJ-2013-05205

PATIENT
  Sex: 0

DRUGS (16)
  1. VELCADE [Suspect]
     Indication: PLASMA CELL MYELOMA
     Dosage: 2.5 MG, UNK
     Route: 042
     Dates: start: 20130523, end: 20130530
  2. VELCADE [Suspect]
     Dosage: UNK
     Route: 042
     Dates: start: 20130717
  3. LENALIDOMIDE [Suspect]
     Indication: PLASMA CELL MYELOMA
     Dosage: 25 MG, UNK
     Route: 048
     Dates: start: 20130523, end: 20130530
  4. LENALIDOMIDE [Suspect]
     Dosage: UNK
     Route: 048
     Dates: start: 20130717
  5. CYCLOPHOSPHAMIDE [Suspect]
     Indication: PLASMA CELL MYELOMA
     Dosage: 1000 MG, UNK
     Route: 042
     Dates: start: 20121129, end: 20130418
  6. CYCLOPHOSPHAMIDE [Suspect]
     Dosage: UNK
     Route: 042
     Dates: start: 20130717
  7. DEXAMETHASONE [Suspect]
     Dosage: 40 MG, UNK
     Route: 048
     Dates: start: 20130523, end: 20130630
  8. DEXAMETHASONE [Suspect]
     Dosage: UNK
     Route: 048
     Dates: start: 20130717
  9. G-CSF [Suspect]
     Indication: PLASMA CELL MYELOMA
     Dosage: 90 MG, UNK
     Route: 058
     Dates: start: 20130215, end: 20130218
  10. G-CSF [Suspect]
     Dosage: UNK
     Route: 058
     Dates: start: 20130717
  11. MELPHALAN [Suspect]
     Indication: PLASMA CELL MYELOMA
     Dosage: 200 MG, UNK
     Route: 042
     Dates: start: 20130325, end: 20130326
  12. MELPHALAN [Suspect]
     Dosage: UNK
     Route: 042
     Dates: start: 20130717
  13. VALTREX [Concomitant]
     Dosage: 500 MG, UNK
     Route: 048
  14. BACTRIM [Concomitant]
     Dosage: UNK
     Dates: start: 20130412
  15. ASPIRIN CARDIO [Concomitant]
     Dosage: 100 MG, UNK
     Route: 048
  16. CALCIMAGON                         /00108001/ [Concomitant]
     Dosage: UNK
     Route: 048

REACTIONS (3)
  - Platelet count decreased [Recovered/Resolved]
  - Neutrophil count decreased [Recovered/Resolved]
  - Febrile neutropenia [Recovered/Resolved]
